FAERS Safety Report 6942998-3 (Version None)
Quarter: 2010Q3

REPORT INFORMATION
  Report Type: 
  Country: None (occurrence: None)
  Receive Date: 20100825
  Receipt Date: 20100825
  Transmission Date: 20110219
  Serious: Yes (Other)
  Sender: FDA-Public Use
  Company Number: None

PATIENT
  Age: 58 Year
  Sex: Female
  Weight: 95.2554 kg

DRUGS (2)
  1. LIOTHYRONINE SODIUM [Suspect]
     Indication: HYPERTHYROIDISM
     Dosage: 5 MCG ONCE A DAY PO
     Route: 048
     Dates: start: 20100805, end: 20100812
  2. LIOTHYRONINE SODIUM [Suspect]
     Indication: THYROID CANCER
     Dosage: 5 MCG ONCE A DAY PO
     Route: 048
     Dates: start: 20100805, end: 20100812

REACTIONS (5)
  - DRUG INEFFECTIVE [None]
  - HYPOTHYROIDISM [None]
  - LETHARGY [None]
  - MUSCLE SPASMS [None]
  - PRODUCT SUBSTITUTION ISSUE [None]
